APPROVED DRUG PRODUCT: ESOMEPRAZOLE MAGNESIUM
Active Ingredient: ESOMEPRAZOLE MAGNESIUM
Strength: EQ 40MG BASE
Dosage Form/Route: CAPSULE, DELAYED REL PELLETS;ORAL
Application: A209647 | Product #002
Applicant: AMNEAL PHARMACEUTICALS OF NY LLC
Approved: Apr 10, 2019 | RLD: No | RS: No | Type: DISCN